FAERS Safety Report 10232602 (Version 3)
Quarter: 2014Q3

REPORT INFORMATION
  Report Type: Report from Study
  Country: DE (occurrence: DE)
  Receive Date: 20140612
  Receipt Date: 20140915
  Transmission Date: 20150326
  Serious: Yes (Disabling)
  Sender: FDA-Public Use
  Company Number: DE-AMGEN INC.-DEUCT2014043478

PATIENT
  Age: 41 Year
  Sex: Male

DRUGS (1)
  1. ETANERCEPT [Suspect]
     Active Substance: ETANERCEPT
     Indication: RHEUMATOID ARTHRITIS
     Dosage: 25 MG, WEEKLY
     Route: 065
     Dates: end: 201403

REACTIONS (1)
  - Bursitis [Not Recovered/Not Resolved]

NARRATIVE: CASE EVENT DATE: 201401
